FAERS Safety Report 15179251 (Version 1)
Quarter: 2018Q3

REPORT INFORMATION
  Report Type: Spontaneous
  Country: US (occurrence: US)
  Receive Date: 20180723
  Receipt Date: 20180723
  Transmission Date: 20181010
  Serious: No
  Sender: FDA-Public Use
  Company Number: US-TEVA-809538ACC

PATIENT
  Sex: Male
  Weight: 122 kg

DRUGS (1)
  1. METOCLOPRAMIDE. [Suspect]
     Active Substance: METOCLOPRAMIDE
     Indication: DIABETIC GASTROPARESIS
     Dates: start: 201708, end: 20170914

REACTIONS (13)
  - Chills [Unknown]
  - Tremor [Unknown]
  - Dyspepsia [Unknown]
  - Crying [Unknown]
  - Insomnia [Unknown]
  - Depression [Unknown]
  - Agitation [Unknown]
  - Weight decreased [Unknown]
  - Wrong technique in product usage process [Unknown]
  - Muscle spasms [Unknown]
  - Dysphemia [Unknown]
  - Decreased appetite [Unknown]
  - Paranoia [Unknown]

NARRATIVE: CASE EVENT DATE: 201708
